FAERS Safety Report 6482754 (Version 2)
Quarter: 2013Q1

REPORT INFORMATION
  Report Type: Spontaneous
  Country: US (occurrence: US)
  Receive Date: 20071206
  Receipt Date: 20130314
  Transmission Date: 20140127
  Serious: Yes (Other)
  Sender: FDA-Public Use
  Company Number: US-AMGEN-US208775

PATIENT
  Age: 56 Year
  Sex: Male

DRUGS (16)
  1. ENBREL [Suspect]
     Indication: PSORIASIS
     Dosage: 25 MG, 2 TIMES/WK
     Route: 058
     Dates: start: 20050414, end: 20070125
  2. BISOPROLOL W/HYDROCHLOROTHIAZIDE   /01166101/ [Concomitant]
     Dosage: UNK
  3. CELEBREX [Concomitant]
     Dosage: UNK
  4. ACTONEL [Concomitant]
     Dosage: UNK
  5. ALBUTEROL                          /00139501/ [Concomitant]
     Dosage: UNK
  6. ELOVENT [Concomitant]
     Dosage: UNK
  7. CALCIUM [Concomitant]
     Dosage: UNK
  8. GLUCOSAMINE [Concomitant]
     Dosage: UNK
  9. CHONDROITIN [Concomitant]
     Dosage: UNK
  10. ELOCON [Concomitant]
     Dosage: UNK
  11. CLOBEX                             /00012002/ [Concomitant]
     Dosage: UNK UNK, BID
  12. FOLIC ACID [Concomitant]
     Dosage: UNK
  13. OMEPRAZOLE [Concomitant]
     Dosage: UNK
  14. TACLONEX [Concomitant]
     Dosage: UNK UNK, QD
  15. LUBRIC                             /00485401/ [Concomitant]
     Dosage: UNK
  16. SORIATANE [Concomitant]
     Dosage: UNK

REACTIONS (4)
  - Colon cancer [Recovered/Resolved]
  - Sebaceous hyperplasia [Unknown]
  - Psoriasis [Unknown]
  - Guttate psoriasis [Unknown]
